FAERS Safety Report 9714220 (Version 2)
Quarter: 2015Q3

REPORT INFORMATION
  Report Type: Spontaneous
  Country: US (occurrence: US)
  Receive Date: 20131126
  Receipt Date: 20150803
  Transmission Date: 20151125
  Serious: No
  Sender: FDA-Public Use
  Company Number: US-GILEAD-2008-0019440

PATIENT
  Age: 64 Year
  Sex: Female
  Weight: 53.52 kg

DRUGS (13)
  1. VISTARIL [Concomitant]
     Active Substance: HYDROXYZINE PAMOATE
  2. TRANXENEN-T [Concomitant]
  3. ALBUTEROL INHALER [Concomitant]
     Active Substance: ALBUTEROL
  4. SPIRIVA [Concomitant]
     Active Substance: TIOTROPIUM BROMIDE MONOHYDRATE
  5. NEURONTIN [Concomitant]
     Active Substance: GABAPENTIN
  6. TYLENOL EX-STRENGTH [Concomitant]
  7. LETAIRIS [Suspect]
     Active Substance: AMBRISENTAN
     Route: 048
     Dates: start: 20081205
  8. ATORVASTATIN CALCIUM/AMLODIPINE BESILATE [Concomitant]
  9. MOTRIN [Concomitant]
     Active Substance: IBUPROFEN
  10. XOPENEX [Concomitant]
     Active Substance: LEVALBUTEROL HYDROCHLORIDE
  11. ASPIRIN. [Concomitant]
     Active Substance: ASPIRIN
  12. PLAVIX [Concomitant]
     Active Substance: CLOPIDOGREL BISULFATE
  13. LEXAPRO [Concomitant]
     Active Substance: ESCITALOPRAM OXALATE

REACTIONS (2)
  - Fatigue [None]
  - Dyspnoea [None]
